FAERS Safety Report 9236336 (Version 1)
Quarter: 2013Q2

REPORT INFORMATION
  Report Type: Spontaneous
  Country: US (occurrence: US)
  Receive Date: 20130417
  Receipt Date: 20130417
  Transmission Date: 20140414
  Serious: No
  Sender: FDA-Public Use
  Company Number: US-BAYER-2013-048465

PATIENT
  Age: 55 Year
  Sex: Female
  Weight: 62 kg

DRUGS (3)
  1. ALEVE TABLET [Suspect]
     Indication: BACK PAIN
     Dosage: 1 DF, QD
     Route: 048
     Dates: start: 20130409, end: 20130410
  2. ROPINIROLE [Concomitant]
     Dosage: 1 MG, UNK
  3. PAXIL [Concomitant]
     Dosage: 30 MG, QD

REACTIONS (1)
  - Dizziness [Recovered/Resolved]
